FAERS Safety Report 14441980 (Version 1)
Quarter: 2018Q1

REPORT INFORMATION
  Report Type: Spontaneous
  Country: ES (occurrence: ES)
  Receive Date: 20180125
  Receipt Date: 20180125
  Transmission Date: 20180509
  Serious: Yes (Death, Other)
  Sender: FDA-Public Use
  Company Number: ES-MYLANLABS-2018M1005446

PATIENT
  Age: 72 Year
  Sex: Male

DRUGS (1)
  1. AZATHIOPRINE. [Suspect]
     Active Substance: AZATHIOPRINE
     Indication: COLITIS ULCERATIVE
     Dosage: UNK
     Route: 065

REACTIONS (3)
  - Lymphadenopathy [Unknown]
  - Penile squamous cell carcinoma [Unknown]
  - Papilloma viral infection [Unknown]

NARRATIVE: CASE EVENT DATE: 201310
